FAERS Safety Report 22848300 (Version 4)
Quarter: 2023Q4

REPORT INFORMATION
  Report Type: Spontaneous
  Country: US (occurrence: US)
  Receive Date: 20230822
  Receipt Date: 20231016
  Transmission Date: 20240110
  Serious: No
  Sender: FDA-Public Use
  Company Number: US-BIOGEN-2021BI01051805

PATIENT
  Age: 66 Year
  Sex: Female

DRUGS (6)
  1. VUMERITY [Suspect]
     Active Substance: DIROXIMEL FUMARATE
     Indication: Multiple sclerosis
     Dosage: TAKE 2 CAPSULES (462MG) BY MOUTH TWICE DAILY.
     Route: 050
     Dates: end: 2022
  2. VUMERITY [Suspect]
     Active Substance: DIROXIMEL FUMARATE
     Route: 050
  3. VUMERITY [Suspect]
     Active Substance: DIROXIMEL FUMARATE
     Dosage: TAKING 3 PILLS A DAY (2 IN AM AND 1 PM)
     Route: 050
  4. VUMERITY [Suspect]
     Active Substance: DIROXIMEL FUMARATE
     Route: 050
     Dates: start: 20211021
  5. VITAMIN D3 [Concomitant]
     Active Substance: CHOLECALCIFEROL
     Route: 050
  6. OMEGA 3 [Concomitant]
     Active Substance: CAPSAICIN
     Indication: Product used for unknown indication
     Route: 050

REACTIONS (14)
  - Prescribed overdose [Not Recovered/Not Resolved]
  - Underdose [Not Recovered/Not Resolved]
  - Prescribed underdose [Unknown]
  - Expired product administered [Unknown]
  - Urinary tract infection [Not Recovered/Not Resolved]
  - Dehydration [Unknown]
  - Somnolence [Unknown]
  - Back pain [Unknown]
  - Malaise [Unknown]
  - Muscle spasms [Unknown]
  - Renal pain [Recovered/Resolved]
  - Chest discomfort [Recovered/Resolved]
  - Musculoskeletal discomfort [Recovered/Resolved]
  - Fatigue [Recovered/Resolved]

NARRATIVE: CASE EVENT DATE: 20230901
